FAERS Safety Report 20008749 (Version 4)
Quarter: 2024Q1

REPORT INFORMATION
  Report Type: Spontaneous
  Country: US (occurrence: US)
  Receive Date: 20211028
  Receipt Date: 20240109
  Transmission Date: 20240409
  Serious: Yes (Hospitalization, Other)
  Sender: FDA-Public Use
  Company Number: US-PFIZER INC-202101151491

PATIENT
  Age: 87 Year
  Sex: Male
  Weight: 54.43 kg

DRUGS (1)
  1. VYNDAMAX [Suspect]
     Active Substance: TAFAMIDIS
     Indication: Cardiac disorder
     Dosage: 61 MG, 1X/DAY

REACTIONS (8)
  - Peripheral coldness [Not Recovered/Not Resolved]
  - Cardiac pacemaker insertion [Unknown]
  - Contusion [Unknown]
  - Illness [Unknown]
  - Malaise [Recovered/Resolved]
  - Weight decreased [Recovering/Resolving]
  - Asthenia [Recovered/Resolved]
  - Decreased appetite [Recovered/Resolved]
